FAERS Safety Report 8340305-5 (Version None)
Quarter: 2012Q2

REPORT INFORMATION
  Report Type: 
  Country: None (occurrence: None)
  Receive Date: 20120507
  Receipt Date: 20120507
  Transmission Date: 20120825
  Serious: Yes (Hospitalization)
  Sender: FDA-Public Use
  Company Number: None

PATIENT
  Age: 45 Year
  Sex: Female
  Weight: 127 kg

DRUGS (1)
  1. LISINOPRIL AND HYDROCHLOROTHIAZIDE [Suspect]
     Indication: HYPERTENSION
     Dosage: |DOSAGETEXT: 1 PILL||STRENGTH: 20/10 MG||FREQ: Q DAY||ROUTE: ORAL|
     Route: 048
     Dates: start: 20110205, end: 20110814

REACTIONS (8)
  - VASCULITIS [None]
  - ABDOMINAL PAIN [None]
  - DIARRHOEA [None]
  - ILEITIS [None]
  - WHITE BLOOD CELL COUNT INCREASED [None]
  - VOMITING [None]
  - NAUSEA [None]
  - C-REACTIVE PROTEIN INCREASED [None]
